FAERS Safety Report 5477574-5 (Version None)
Quarter: 2007Q3

REPORT INFORMATION
  Report Type: 
  Country: None (occurrence: None)
  Receive Date: 20070925
  Receipt Date: 20070810
  Transmission Date: 20080115
  Serious: No
  Sender: FDA-Public Use
  Company Number: 2007US001911

PATIENT
  Age: 75 Year
  Sex: Female

DRUGS (3)
  1. VESICARE [Suspect]
     Indication: INCONTINENCE
     Dosage: 5 MG, BID, ORAL
     Route: 048
  2. MULTIVITAMIN [Concomitant]
  3. FISH OIL (FISH OIL) [Concomitant]

REACTIONS (2)
  - DRUG INEFFECTIVE [None]
  - URINE ODOUR ABNORMAL [None]
